FAERS Safety Report 20727925 (Version 2)
Quarter: 2022Q2

REPORT INFORMATION
  Report Type: Report from Study
  Country: CA (occurrence: CA)
  Receive Date: 20220419
  Receipt Date: 20220504
  Transmission Date: 20220721
  Serious: Yes (Death, Hospitalization, Other)
  Sender: FDA-Public Use
  Company Number: CA-ABBVIE-22K-028-4359318-00

PATIENT
  Sex: Male
  Weight: 81.720 kg

DRUGS (1)
  1. HUMIRA [Suspect]
     Active Substance: ADALIMUMAB
     Indication: Rheumatoid arthritis
     Route: 058
     Dates: start: 20080926

REACTIONS (10)
  - Oesophageal rupture [Fatal]
  - Oesophageal stenosis [Unknown]
  - Odynophagia [Not Recovered/Not Resolved]
  - Cardiac failure [Unknown]
  - COVID-19 [Unknown]
  - Chest discomfort [Unknown]
  - Fluid retention [Unknown]
  - Chronic obstructive pulmonary disease [Unknown]
  - Ulcer [Unknown]
  - Lung consolidation [Unknown]

NARRATIVE: CASE EVENT DATE: 20220101
